FAERS Safety Report 4376782-4 (Version None)
Quarter: 2004Q2

REPORT INFORMATION
  Report Type: 
  Country: None (occurrence: None)
  Receive Date: 20040608
  Receipt Date: 20040524
  Transmission Date: 20050107
  Serious: Yes (Other)
  Sender: FDA-Public Use
  Company Number: DSA_24473_2004

PATIENT
  Age: 65 Year
  Sex: Male

DRUGS (3)
  1. VASOTEC [Suspect]
     Dates: end: 20031223
  2. SDZ RAD (EXTENSION STUDY DRUG) [Suspect]
     Indication: RENAL TRANSPLANT
     Dosage: 2.5 MG BID PO
     Route: 048
  3. SDZ RAD (RAD001) (BLINDED STUDY DRUG) [Suspect]
     Indication: RENAL TRANSPLANT
     Dosage: DF

REACTIONS (1)
  - ANAPHYLACTIC REACTION [None]
